FAERS Safety Report 14751038 (Version 2)
Quarter: 2018Q2

REPORT INFORMATION
  Report Type: Spontaneous
  Country: US (occurrence: US)
  Receive Date: 20180412
  Receipt Date: 20180501
  Transmission Date: 20180711
  Serious: Yes (Other)
  Sender: FDA-Public Use
  Company Number: US-PURDUE-USA-2018-0142346

PATIENT
  Sex: Male

DRUGS (12)
  1. SENOKOTXTRA [Suspect]
     Active Substance: SENNOSIDES
     Dosage: 2 TABLET, SINGLE
     Route: 048
     Dates: start: 20180108
  2. ASPIRIN. [Concomitant]
     Active Substance: ASPIRIN
     Indication: PRODUCT USED FOR UNKNOWN INDICATION
     Dosage: 80 MG, BID
     Route: 048
  3. TEMAZEPAM. [Concomitant]
     Active Substance: TEMAZEPAM
     Indication: PRODUCT USED FOR UNKNOWN INDICATION
     Dosage: UNK, PM
     Route: 048
  4. COREG [Concomitant]
     Active Substance: CARVEDILOL
     Indication: PRODUCT USED FOR UNKNOWN INDICATION
     Dosage: UNK
     Route: 048
  5. SENOKOTXTRA [Suspect]
     Active Substance: SENNOSIDES
     Dosage: 1 TABLET, SINGLE
     Route: 048
     Dates: start: 20180321, end: 20180321
  6. TOPAMAX [Concomitant]
     Active Substance: TOPIRAMATE
     Indication: PRODUCT USED FOR UNKNOWN INDICATION
     Dosage: 50 MG, UNK
     Route: 048
  7. ATORVASTATIN [Concomitant]
     Active Substance: ATORVASTATIN
     Indication: PRODUCT USED FOR UNKNOWN INDICATION
     Route: 048
  8. SENOKOTXTRA [Suspect]
     Active Substance: SENNOSIDES
     Indication: FAECES HARD
     Dosage: UNK
     Route: 048
     Dates: end: 201803
  9. SENOKOTXTRA [Suspect]
     Active Substance: SENNOSIDES
     Dosage: 1 TABLET, SINGLE
     Route: 048
     Dates: start: 20180321, end: 20180321
  10. SENOKOTXTRA [Suspect]
     Active Substance: SENNOSIDES
     Dosage: 1 TABLET, SINGLE
     Route: 048
     Dates: start: 201803, end: 201803
  11. PLAVIX [Concomitant]
     Active Substance: CLOPIDOGREL BISULFATE
     Indication: PRODUCT USED FOR UNKNOWN INDICATION
     Route: 048
  12. EXLAX /00221401/ [Suspect]
     Active Substance: PHENOLPHTHALEIN
     Indication: FLATULENCE
     Dosage: UNK, PRN
     Route: 048

REACTIONS (10)
  - Flatulence [Unknown]
  - Constipation [Not Recovered/Not Resolved]
  - Arthralgia [Not Recovered/Not Resolved]
  - Drug ineffective [Not Recovered/Not Resolved]
  - Peripheral swelling [Not Recovered/Not Resolved]
  - Cardiac disorder [Not Recovered/Not Resolved]
  - Dizziness [Unknown]
  - Gastrointestinal motility disorder [Unknown]
  - Diarrhoea [Not Recovered/Not Resolved]
  - Neuralgia [Unknown]

NARRATIVE: CASE EVENT DATE: 20180109
